FAERS Safety Report 16314496 (Version 1)
Quarter: 2019Q2

REPORT INFORMATION
  Report Type: Spontaneous
  Country: US (occurrence: US)
  Receive Date: 20190409
  Receipt Date: 20190409
  Transmission Date: 20190711
  Serious: No
  Sender: FDA-Public Use
  Company Number: None

PATIENT
  Age: 68 Year
  Sex: Male

DRUGS (1)
  1. NAFCILLIN SODIUM. [Suspect]
     Active Substance: NAFCILLIN SODIUM
     Indication: INFECTION
     Route: 042
     Dates: start: 20190328

REACTIONS (2)
  - Swollen tongue [None]
  - Throat irritation [None]

NARRATIVE: CASE EVENT DATE: 20190329
